FAERS Safety Report 22137511 (Version 11)
Quarter: 2025Q2

REPORT INFORMATION
  Report Type: Spontaneous
  Country: US (occurrence: US)
  Receive Date: 20230325
  Receipt Date: 20250428
  Transmission Date: 20250717
  Serious: Yes (Other)
  Sender: BRISTOL-MYERS SQUIBB COMPANY
  Company Number: US-BRISTOL-MYERS SQUIBB COMPANY-2023-042658

PATIENT
  Age: 71 Year
  Sex: Female

DRUGS (9)
  1. POMALYST [Suspect]
     Active Substance: POMALIDOMIDE
     Indication: Plasma cell myeloma
     Route: 048
     Dates: start: 202012
  2. POMALYST [Suspect]
     Active Substance: POMALIDOMIDE
     Route: 048
  3. POMALYST [Suspect]
     Active Substance: POMALIDOMIDE
     Route: 048
  4. POMALYST [Suspect]
     Active Substance: POMALIDOMIDE
     Dosage: QD FOR 21 DAYS
     Route: 048
  5. POMALYST [Suspect]
     Active Substance: POMALIDOMIDE
     Dosage: QDAY
     Route: 048
  6. POMALYST [Suspect]
     Active Substance: POMALIDOMIDE
     Route: 048
  7. ACYCLOVIR [Concomitant]
     Active Substance: ACYCLOVIR
     Indication: Product used for unknown indication
  8. ASPIRIN [Concomitant]
     Active Substance: ASPIRIN
     Indication: Product used for unknown indication
  9. SERTRALINE [Concomitant]
     Active Substance: SERTRALINE HYDROCHLORIDE
     Indication: Product used for unknown indication

REACTIONS (10)
  - Dizziness [Not Recovered/Not Resolved]
  - Back pain [Unknown]
  - Chest pain [Unknown]
  - Headache [Not Recovered/Not Resolved]
  - Chest discomfort [Unknown]
  - Syncope [Unknown]
  - Eye pain [Unknown]
  - Fatigue [Not Recovered/Not Resolved]
  - Dyspnoea [Unknown]
  - Bone pain [Unknown]

NARRATIVE: CASE EVENT DATE: 20230323
